FAERS Safety Report 7098220-3 (Version None)
Quarter: 2010Q4

REPORT INFORMATION
  Report Type: 
  Country: None (occurrence: None)
  Receive Date: 20101112
  Receipt Date: 20101104
  Transmission Date: 20110411
  Serious: Yes (Congenital Anomaly, Other)
  Sender: FDA-Public Use
  Company Number: FR-BRISTOL-MYERS SQUIBB COMPANY-15368954

PATIENT
  Sex: Male

DRUGS (3)
  1. ABILIFY [Suspect]
     Route: 064
  2. LEXOMIL [Suspect]
     Route: 064
  3. SOLIAN [Suspect]
     Route: 064

REACTIONS (6)
  - CAESAREAN SECTION [None]
  - CEREBRAL CALCIFICATION [None]
  - FOOT DEFORMITY [None]
  - INFANTILE SPASMS [None]
  - MACROCEPHALY [None]
  - MATERNAL DRUGS AFFECTING FOETUS [None]
